FAERS Safety Report 25697695 (Version 1)
Quarter: 2025Q3

REPORT INFORMATION
  Report Type: Spontaneous
  Country: US (occurrence: US)
  Receive Date: 20250819
  Receipt Date: 20250819
  Transmission Date: 20251020
  Serious: No
  Sender: BOEHRINGER INGELHEIM
  Company Number: US-Komodo Health-a23aa000009XAY5AAO

PATIENT
  Age: 66 Year
  Sex: Female

DRUGS (2)
  1. COMBIVENT RESPIMAT [Suspect]
     Active Substance: ALBUTEROL SULFATE\IPRATROPIUM BROMIDE
     Indication: Asthma
  2. Albuterol Rescue Inhaler [Concomitant]
     Indication: Product used for unknown indication

REACTIONS (4)
  - Nasopharyngitis [Not Recovered/Not Resolved]
  - Sinusitis [Not Recovered/Not Resolved]
  - Bronchitis [Unknown]
  - Off label use [Unknown]

NARRATIVE: CASE EVENT DATE: 20250701
